FAERS Safety Report 21574277 (Version 1)
Quarter: 2022Q4

REPORT INFORMATION
  Report Type: Spontaneous
  Country: PT (occurrence: PT)
  Receive Date: 20221109
  Receipt Date: 20221109
  Transmission Date: 20230113
  Serious: Yes (Hospitalization, Other)
  Sender: FDA-Public Use
  Company Number: PT-PRINSTON PHARMACEUTICAL INC.-2022PRN00406

PATIENT
  Age: 70 Year
  Sex: Male

DRUGS (1)
  1. BUPROPION [Suspect]
     Active Substance: BUPROPION
     Dosage: 300 MG
     Route: 065

REACTIONS (1)
  - Parkinsonism [Recovering/Resolving]
